APPROVED DRUG PRODUCT: POLYETHYLENE GLYCOL 3350
Active Ingredient: POLYETHYLENE GLYCOL 3350
Strength: 17GM/SCOOPFUL
Dosage Form/Route: FOR SOLUTION;ORAL
Application: A214990 | Product #001
Applicant: ANNORA PHARMA PRIVATE LTD
Approved: Apr 14, 2021 | RLD: No | RS: No | Type: OTC